FAERS Safety Report 8264840-3 (Version None)
Quarter: 2012Q2

REPORT INFORMATION
  Report Type: 
  Country: None (occurrence: None)
  Receive Date: 20120406
  Receipt Date: 20120331
  Transmission Date: 20120825
  Serious: Yes (Other)
  Sender: FDA-Public Use
  Company Number: US-JNJFOC-20120400745

PATIENT
  Sex: Male
  Weight: 83.92 kg

DRUGS (3)
  1. RISPERDAL [Suspect]
     Indication: SLEEP TERROR
     Route: 048
     Dates: start: 20030101
  2. LAMICTAL [Concomitant]
     Indication: BIPOLAR DISORDER
     Route: 048
  3. FOCALIN XR [Concomitant]
     Indication: ATTENTION DEFICIT/HYPERACTIVITY DISORDER
     Route: 048

REACTIONS (6)
  - HYPOGONADISM [None]
  - LETHARGY [None]
  - TARDIVE DYSKINESIA [None]
  - PARKINSON'S DISEASE [None]
  - WEIGHT INCREASED [None]
  - FEELING ABNORMAL [None]
